FAERS Safety Report 6918841-5 (Version None)
Quarter: 2010Q3

REPORT INFORMATION
  Report Type: 
  Country: None (occurrence: None)
  Receive Date: 20100811
  Receipt Date: 20100727
  Transmission Date: 20110219
  Serious: Yes (Hospitalization)
  Sender: FDA-Public Use
  Company Number: US-ELI_LILLY_AND_COMPANY-US201005007691

PATIENT
  Sex: Female

DRUGS (13)
  1. FORTEO [Suspect]
     Indication: OSTEOPOROSIS
     Dosage: 20 UG, DAILY (1/D)
     Dates: start: 20100331
  2. PRAVASTATIN [Concomitant]
     Indication: LIPIDS
     Dosage: 20 MG, DAILY (1/D)
  3. PRAVASTATIN [Concomitant]
     Dosage: 20 MG, 3/W
  4. LEVOTHYROXINE [Concomitant]
     Dosage: 50 MG, DAILY (1/D)
  5. DILTIAN [Concomitant]
     Dosage: 120 MG, DAILY (1/D)
  6. OMEPRAZOLE [Concomitant]
     Dosage: 20 MG, 3/W
  7. VITAMIN TAB [Concomitant]
  8. CALCIUM [Concomitant]
  9. VITAMIN D [Concomitant]
     Dosage: 600 MG, UNK
  10. FISH OIL [Concomitant]
     Dosage: 1200 MG, UNK
  11. VITAMIN B-12 [Concomitant]
     Dosage: 1000 MG, UNK
  12. MAGNESIA [Concomitant]
     Dosage: 400 MG, DAILY (1/D)
  13. ASPIRIN [Concomitant]
     Dosage: 325 MG, UNK

REACTIONS (1)
  - APPENDICECTOMY [None]
